FAERS Safety Report 9198437 (Version 1)
Quarter: 2013Q1

REPORT INFORMATION
  Report Type: Spontaneous
  Country: US (occurrence: None)
  Receive Date: 20130327
  Receipt Date: 20130327
  Transmission Date: 20140127
  Serious: Yes (Life-Threatening)
  Sender: FDA-Public Use
  Company Number: None

PATIENT
  Age: 80 Year
  Sex: Female
  Weight: 77.57 kg

DRUGS (2)
  1. MULTAQ 400MG SANOFI -ABENTIS- [Suspect]
     Indication: ARRHYTHMIA PROPHYLAXIS
     Dosage: 400 MG BID PO
     Route: 048
     Dates: start: 20130105, end: 20130217
  2. MULTAQ 400MG SANOFI -ABENTIS- [Suspect]
     Dosage: 400 MG BID PO
     Route: 048
     Dates: start: 20130105, end: 20130217

REACTIONS (5)
  - Weight increased [None]
  - Renal failure acute [None]
  - Pulmonary oedema [None]
  - Apparent death [None]
  - Drug ineffective [None]
